FAERS Safety Report 8817117 (Version 1)
Quarter: 2012Q4

REPORT INFORMATION
  Report Type: Spontaneous
  Country: US (occurrence: None)
  Receive Date: 20121003
  Receipt Date: 20121003
  Transmission Date: 20130627
  Serious: Yes (Hospitalization)
  Sender: FDA-Public Use
  Company Number: None

PATIENT
  Age: 79 Year
  Sex: Male
  Weight: 85.5 kg

DRUGS (2)
  1. KETOCONAZOLE [Suspect]
     Route: 048
     Dates: start: 20100518, end: 20100620
  2. SIMVASTATIN [Suspect]
     Route: 048

REACTIONS (5)
  - Rhabdomyolysis [None]
  - Liver injury [None]
  - Drug dispensing error [None]
  - Overdose [None]
  - Renal failure acute [None]
